FAERS Safety Report 20900048 (Version 1)
Quarter: 2022Q2

REPORT INFORMATION
  Report Type: Spontaneous
  Country: US (occurrence: US)
  Receive Date: 20220601
  Receipt Date: 20220601
  Transmission Date: 20220721
  Serious: Yes (Hospitalization, Other)
  Sender: FDA-Public Use
  Company Number: US-ALKEM LABORATORIES LIMITED-US-ALKEM-2022-05146

PATIENT
  Age: 1 Month
  Sex: Male

DRUGS (1)
  1. METHADONE HYDROCHLORIDE [Suspect]
     Active Substance: METHADONE HYDROCHLORIDE
     Indication: Product used for unknown indication
     Dosage: UNK
     Route: 063

REACTIONS (8)
  - Lethargy [Unknown]
  - Respiratory arrest [Unknown]
  - Agitation [Unknown]
  - Irritability [Unknown]
  - Tremor [Unknown]
  - Diarrhoea [Unknown]
  - Somnolence [Unknown]
  - Exposure via breast milk [Unknown]
